FAERS Safety Report 24298090 (Version 1)
Quarter: 2024Q3

REPORT INFORMATION
  Report Type: Spontaneous
  Country: US (occurrence: US)
  Receive Date: 20240909
  Receipt Date: 20240909
  Transmission Date: 20241017
  Serious: No
  Sender: BIOCON
  Company Number: US-BIOCON-BCN-2024-000027

PATIENT
  Age: 73 Year
  Sex: Female

DRUGS (1)
  1. SIMVASTATIN [Suspect]
     Active Substance: SIMVASTATIN
     Indication: Product used for unknown indication

REACTIONS (2)
  - Low density lipoprotein abnormal [Unknown]
  - Pain [Unknown]
